FAERS Safety Report 13975431 (Version 1)
Quarter: 2017Q3

REPORT INFORMATION
  Report Type: Other
  Country: None (occurrence: US)
  Receive Date: 20170915
  Receipt Date: 20170915
  Transmission Date: 20171128
  Serious: Yes (Other)
  Sender: FDA-Public Use
  Company Number: US-GUTHY-RENKER LLC-2026419

PATIENT
  Age: 57 Year
  Sex: Female

DRUGS (1)
  1. MEANINGFUL BEAUTY CINDY CRAWFORD ANTIOXIDANT SPF 20 UVA/UVB [Suspect]
     Active Substance: AVOBENZONE\OCTINOXATE\OCTISALATE\OXYBENZONE
     Indication: PROPHYLAXIS AGAINST SOLAR RADIATION
     Route: 061
     Dates: start: 201705, end: 20170823

REACTIONS (6)
  - Urticaria [None]
  - Infection [None]
  - Lip swelling [None]
  - Eye swelling [Recovering/Resolving]
  - Skin fissures [None]
  - Swelling face [None]

NARRATIVE: CASE EVENT DATE: 201706
